FAERS Safety Report 6394196-2 (Version None)
Quarter: 2009Q4

REPORT INFORMATION
  Report Type: 
  Country: None (occurrence: None)
  Receive Date: 20091008
  Receipt Date: 20091006
  Transmission Date: 20100525
  Serious: Yes (Other)
  Sender: FDA-Public Use
  Company Number: US-AMGEN-US367814

PATIENT
  Sex: Female

DRUGS (5)
  1. NPLATE [Suspect]
     Indication: IDIOPATHIC THROMBOCYTOPENIC PURPURA
     Route: 058
     Dates: start: 20090605
  2. PREDNISONE [Concomitant]
     Route: 048
  3. MINERAL TAB [Concomitant]
     Route: 048
  4. FOSAMAX [Concomitant]
     Route: 048
  5. CALCIUM [Concomitant]
     Route: 048

REACTIONS (1)
  - PLATELET COUNT DECREASED [None]
